FAERS Safety Report 19045580 (Version 3)
Quarter: 2021Q2

REPORT INFORMATION
  Report Type: Report from Study
  Country: KE (occurrence: KE)
  Receive Date: 20210322
  Receipt Date: 20210526
  Transmission Date: 20210717
  Serious: Yes (Other)
  Sender: FDA-Public Use
  Company Number: KE-SEATTLE GENETICS-2020SGN05070

PATIENT
  Sex: Male

DRUGS (1)
  1. BRENTUXIMAB VEDOTIN [Suspect]
     Active Substance: BRENTUXIMAB VEDOTIN
     Indication: ANAPLASTIC LARGE-CELL LYMPHOMA
     Dosage: 90 MILLIGRAM, Q3WEEKS
     Route: 042
     Dates: start: 20200925

REACTIONS (5)
  - Lower respiratory tract infection [Unknown]
  - Tuberculosis [Unknown]
  - Weight decreased [Unknown]
  - Metastases to lung [Unknown]
  - White blood cell count decreased [Unknown]
